FAERS Safety Report 9631971 (Version 1)
Quarter: 2013Q4

REPORT INFORMATION
  Report Type: Spontaneous
  Country: US (occurrence: None)
  Receive Date: 20131017
  Receipt Date: 20131017
  Transmission Date: 20140711
  Serious: No
  Sender: FDA-Public Use
  Company Number: None

PATIENT
  Age: 8 Year
  Sex: Male
  Weight: 31.75 kg

DRUGS (1)
  1. METHYLPHENIDATE ER [Suspect]
     Indication: ATTENTION DEFICIT/HYPERACTIVITY DISORDER
     Dosage: 1 PILL OF EACH ONCE DAILY
     Route: 048
     Dates: start: 20130923, end: 20131014

REACTIONS (5)
  - Lethargy [None]
  - Psychomotor hyperactivity [None]
  - Irritability [None]
  - Rebound effect [None]
  - Drug ineffective [None]
